FAERS Safety Report 5140778-5 (Version None)
Quarter: 2006Q4

REPORT INFORMATION
  Report Type: 
  Country: None (occurrence: None)
  Receive Date: 20061024
  Receipt Date: 20061010
  Transmission Date: 20070319
  Serious: Yes (Death)
  Sender: FDA-Public Use
  Company Number: NL200610001680

PATIENT
  Age: 68 Year
  Sex: Female

DRUGS (2)
  1. GEMZAR [Suspect]
     Indication: LEIOMYOSARCOMA METASTATIC
     Dosage: 900 MG, OTHER, INTRAVENOUS
     Route: 042
     Dates: start: 20060120, end: 20060401
  2. TAXOTERE [Concomitant]

REACTIONS (2)
  - PULMONARY OEDEMA [None]
  - PULMONARY TOXICITY [None]
